FAERS Safety Report 9009439 (Version 1)
Quarter: 2013Q1

REPORT INFORMATION
  Report Type: Spontaneous
  Country: US (occurrence: US)
  Receive Date: 20130112
  Receipt Date: 20130112
  Transmission Date: 20140127
  Serious: Yes (Other)
  Sender: FDA-Public Use
  Company Number: US-009507513-0909USA03172

PATIENT
  Age: 6 Year
  Sex: Male
  Weight: 22.68 kg

DRUGS (1)
  1. SINGULAIR [Suspect]
     Indication: ASTHMA
     Dosage: 1 DF, QD
     Route: 048
     Dates: start: 20080919, end: 20081202

REACTIONS (9)
  - Abnormal behaviour [Unknown]
  - Crying [Unknown]
  - Fear [Unknown]
  - Irritability [Unknown]
  - Screaming [Unknown]
  - Blunted affect [Unknown]
  - Depression [Unknown]
  - Self esteem decreased [Unknown]
  - Decreased eye contact [Unknown]
